FAERS Safety Report 17866580 (Version 2)
Quarter: 2020Q2

REPORT INFORMATION
  Report Type: Spontaneous
  Country: DE (occurrence: DE)
  Receive Date: 20200605
  Receipt Date: 20200624
  Transmission Date: 20200714
  Serious: Yes (Disabling, Other)
  Sender: FDA-Public Use
  Company Number: DE-BRISTOL-MYERS SQUIBB COMPANY-BMS-2020-034955

PATIENT
  Age: 16 Year
  Sex: Male

DRUGS (1)
  1. SPRYCEL [Suspect]
     Active Substance: DASATINIB
     Indication: CHRONIC MYELOID LEUKAEMIA
     Dosage: 100 MILLIGRAM, QD
     Route: 065
     Dates: start: 201705

REACTIONS (12)
  - Malaise [Unknown]
  - Eye disorder [Unknown]
  - Skin disorder [Unknown]
  - Depression [Unknown]
  - Tinnitus [Unknown]
  - Respiratory disorder [Recovered/Resolved]
  - Campylobacter gastroenteritis [Recovered/Resolved]
  - Procedural pain [Unknown]
  - Alopecia [Not Recovered/Not Resolved]
  - Paraesthesia [Recovered/Resolved]
  - Muscle disorder [Not Recovered/Not Resolved]
  - Headache [Unknown]

NARRATIVE: CASE EVENT DATE: 201705
